FAERS Safety Report 8317711 (Version 2)
Quarter: 2013Q2

REPORT INFORMATION
  Report Type: Report from Study
  Country: VE (occurrence: VE)
  Receive Date: 20120102
  Receipt Date: 20130520
  Transmission Date: 20140414
  Serious: Yes (Death, Hospitalization)
  Sender: FDA-Public Use
  Company Number: PHHY2011VE113510

PATIENT
  Age: 62 Year
  Sex: Female

DRUGS (8)
  1. ACLASTA [Suspect]
     Dosage: 5 MG, UNK
     Route: 042
     Dates: start: 20110408
  2. TRANGOREX [Concomitant]
     Dosage: ONE TABLE DAILY
  3. DILATREND [Concomitant]
     Dosage: ONE TABLET DAILY
  4. CALCIBON D [Concomitant]
  5. VITAMINS NOS [Concomitant]
  6. FOLIC ACID [Concomitant]
  7. INSULIN [Concomitant]
     Dosage: THREE TIMES FOR DAY
  8. STEROIDS NOS [Concomitant]

REACTIONS (3)
  - Respiratory arrest [Fatal]
  - Haemolysis [Recovered/Resolved]
  - Haemoglobin decreased [Recovered/Resolved]
